FAERS Safety Report 4430481-9 (Version None)
Quarter: 2004Q3

REPORT INFORMATION
  Report Type: 
  Country: None (occurrence: None)
  Receive Date: 20040721
  Receipt Date: 20040113
  Transmission Date: 20050211
  Serious: Yes (Hospitalization)
  Sender: FDA-Public Use
  Company Number: WAES 0401USA00994

PATIENT
  Sex: Male

DRUGS (1)
  1. VIOXX [Suspect]
     Indication: UPPER LIMB FRACTURE
     Dosage: 25 MG/ PO;   50 MG,  50 MG/PO
     Route: 048

REACTIONS (2)
  - GASTRIC HAEMORRHAGE [None]
  - OVERDOSE [None]
